FAERS Safety Report 22606376 (Version 1)
Quarter: 2023Q2

REPORT INFORMATION
  Report Type: Other
  Country: US (occurrence: None)
  Receive Date: 20230615
  Receipt Date: 20230615
  Transmission Date: 20230722
  Serious: Yes (Death, Other)
  Sender: FDA-Public Use
  Company Number: US-ROCHE-3367250

PATIENT

DRUGS (1)
  1. TRASTUZUMAB [Suspect]
     Active Substance: TRASTUZUMAB
     Indication: Breast cancer
     Route: 065

REACTIONS (6)
  - Cardiovascular disorder [Fatal]
  - Cardiac failure [Unknown]
  - Myocardial infarction [Unknown]
  - Coronary artery disease [Unknown]
  - Arrhythmia [Unknown]
  - Angiopathy [Unknown]
